FAERS Safety Report 13063061 (Version 1)
Quarter: 2016Q4

REPORT INFORMATION
  Report Type: Spontaneous
  Country: CA (occurrence: CA)
  Receive Date: 20161227
  Receipt Date: 20161227
  Transmission Date: 20170207
  Serious: Yes (Hospitalization, Other)
  Sender: FDA-Public Use
  Company Number: CA-ROCHE-1871546

PATIENT
  Age: 60 Year
  Sex: Female
  Weight: 93.5 kg

DRUGS (1)
  1. RITUXAN [Suspect]
     Active Substance: RITUXIMAB
     Indication: PRODUCT USED FOR UNKNOWN INDICATION
     Route: 065

REACTIONS (6)
  - Oxygen saturation decreased [Unknown]
  - Herpes zoster [Unknown]
  - Depressed level of consciousness [Recovered/Resolved]
  - Pulmonary haemorrhage [Unknown]
  - Renal tubular necrosis [Unknown]
  - Antineutrophil cytoplasmic antibody increased [Unknown]

NARRATIVE: CASE EVENT DATE: 20160928
